FAERS Safety Report 6099330-X (Version None)
Quarter: 2009Q1

REPORT INFORMATION
  Report Type: 
  Country: None (occurrence: None)
  Receive Date: 20090226
  Receipt Date: 20090216
  Transmission Date: 20090719
  Serious: Yes (Hospitalization, Other)
  Sender: FDA-Public Use
  Company Number: 430011K09USA

PATIENT
  Age: 58 Year
  Sex: Female

DRUGS (3)
  1. NOVANTRONE [Suspect]
     Indication: MULTIPLE SCLEROSIS
     Dates: start: 20010101
  2. NOVANTRONE [Suspect]
     Indication: MULTIPLE SCLEROSIS
     Dates: start: 20080401
  3. BETASERON [Suspect]
     Dosage: 8 OTHER, 1 IN 1 DAYS, SUBCUTANEOUS
     Route: 058
     Dates: start: 19990113

REACTIONS (2)
  - BLOOD GLUCOSE INCREASED [None]
  - TRANSIENT ISCHAEMIC ATTACK [None]
